FAERS Safety Report 22249897 (Version 4)
Quarter: 2024Q1

REPORT INFORMATION
  Report Type: Spontaneous
  Country: US (occurrence: US)
  Receive Date: 20230425
  Receipt Date: 20240314
  Transmission Date: 20240410
  Serious: Yes (Other)
  Sender: FDA-Public Use
  Company Number: US-PFIZER INC-PV202300074385

PATIENT
  Age: 34 Year
  Sex: Female

DRUGS (4)
  1. BRAFTOVI [Suspect]
     Active Substance: ENCORAFENIB
     Indication: Brain neoplasm malignant
     Dosage: (TAKE 6 CAPSULES (450MG TOTAL) BY MOUTH DAILY.)
     Route: 048
  2. BRAFTOVI [Suspect]
     Active Substance: ENCORAFENIB
     Indication: Glioblastoma multiforme
     Dosage: 75 MG
  3. MEKTOVI [Suspect]
     Active Substance: BINIMETINIB
     Indication: Brain neoplasm malignant
     Dosage: (TAKE 3 TABLETS (45MG TOTAL) BY MOUTH TWICE A DAY.)
     Route: 048
  4. MEKTOVI [Suspect]
     Active Substance: BINIMETINIB
     Indication: Glioblastoma multiforme
     Dosage: 15 MG

REACTIONS (4)
  - Seizure [Unknown]
  - Memory impairment [Unknown]
  - Speech disorder [Unknown]
  - Off label use [Unknown]
